FAERS Safety Report 4309453-0 (Version None)
Quarter: 2004Q1

REPORT INFORMATION
  Report Type: 
  Country: None (occurrence: None)
  Receive Date: 20040301
  Receipt Date: 20040216
  Transmission Date: 20041129
  Serious: Yes (Other)
  Sender: FDA-Public Use
  Company Number: 2004007600

PATIENT
  Age: 76 Year
  Sex: Female

DRUGS (6)
  1. GABAPENTIN (GABAPENTIN) [Suspect]
     Indication: NEUROPATHIC PAIN
     Dosage: 1200 MG (TID), ORAL
     Route: 048
     Dates: start: 20030416
  2. DICLOFENAC SODIUM [Suspect]
     Indication: PAIN
     Dosage: 150 MG (TID), ORAL
     Dates: start: 20030522
  3. MEXILETINE HYDROCHLORIDE (MEXILETINE HYDROCHLORIDE) [Suspect]
     Indication: NEUROPATHIC PAIN
     Dosage: 800 MG (QID), ORAL
     Route: 048
     Dates: start: 20021104, end: 20040101
  4. FENTANYL CITRATE [Concomitant]
  5. MISOPROSTOL [Concomitant]
  6. QUETIAPINE FUMARATE (QUETIAPINE FUMARATE) [Concomitant]

REACTIONS (6)
  - BLOOD ALBUMIN DECREASED [None]
  - DYSPNOEA [None]
  - MEDICATION ERROR [None]
  - OEDEMA PERIPHERAL [None]
  - PITTING OEDEMA [None]
  - SWELLING FACE [None]
